FAERS Safety Report 6611839-6 (Version None)
Quarter: 2010Q1

REPORT INFORMATION
  Report Type: 
  Country: None (occurrence: None)
  Receive Date: 20100303
  Receipt Date: 20100218
  Transmission Date: 20100710
  Serious: No
  Sender: FDA-Public Use
  Company Number: JP-EISAI INC.-E0800-00030-SOL-JP

PATIENT
  Age: 7 Decade
  Sex: Female

DRUGS (7)
  1. SALAGEN [Suspect]
     Route: 048
     Dates: start: 20080610, end: 20080713
  2. DOCETAXEL [Concomitant]
     Indication: LARYNGEAL CANCER STAGE I
     Dosage: 10 M2
     Route: 065
     Dates: start: 20080526, end: 20080616
  3. HACHIAZULE [Concomitant]
     Dates: start: 20080604
  4. LOXONIN [Concomitant]
     Dosage: AS NEEDED
     Route: 048
     Dates: start: 20080613
  5. MUCOSTA [Concomitant]
     Route: 048
     Dates: start: 20080613
  6. DEXAMETHASONE [Concomitant]
     Dates: start: 20080624, end: 20080712
  7. BLOPRESS [Concomitant]

REACTIONS (1)
  - LARYNGITIS [None]
